FAERS Safety Report 5741188-X (Version None)
Quarter: 2008Q2

REPORT INFORMATION
  Report Type: 
  Country: None (occurrence: None)
  Receive Date: 20080516
  Receipt Date: 20080506
  Transmission Date: 20081010
  Serious: Yes (Hospitalization, Other)
  Sender: FDA-Public Use
  Company Number: CA-AMGEN-US278263

PATIENT
  Age: 33 Year
  Sex: Female

DRUGS (5)
  1. SENSIPAR [Suspect]
     Indication: HYPERPARATHYROIDISM SECONDARY
     Route: 048
  2. CALCIUM CARBONATE [Concomitant]
     Route: 065
  3. CALCITRIOL [Concomitant]
     Route: 065
  4. SEVELAMER HCL [Concomitant]
     Route: 065
  5. GLYBURIDE [Concomitant]
     Route: 065

REACTIONS (3)
  - BENIGN BONE NEOPLASM [None]
  - PERICARDIAL HAEMORRHAGE [None]
  - SPINAL CORD COMPRESSION [None]
